FAERS Safety Report 13531392 (Version 1)
Quarter: 2017Q2

REPORT INFORMATION
  Report Type: Spontaneous
  Country: US (occurrence: US)
  Receive Date: 20170510
  Receipt Date: 20170510
  Transmission Date: 20170830
  Serious: No
  Sender: FDA-Public Use
  Company Number: None

PATIENT
  Age: 50 Year
  Sex: Female
  Weight: 99.88 kg

DRUGS (4)
  1. HALOPERIDOL 1MG TABLET MYLAN 00378-0257-01 [Suspect]
     Active Substance: HALOPERIDOL
     Indication: HALLUCINATION
     Route: 048
     Dates: start: 20170403, end: 20170410
  2. ABILIFY [Concomitant]
     Active Substance: ARIPIPRAZOLE
  3. HALOPERIDOL 1MG TABLET MYLAN 00378-0257-01 [Suspect]
     Active Substance: HALOPERIDOL
     Indication: PSYCHOTIC DISORDER
     Route: 048
     Dates: start: 20170403, end: 20170410
  4. HALOPERIDOL 1MG TABLET MYLAN 00378-0257-01 [Suspect]
     Active Substance: HALOPERIDOL
     Indication: PARANOIA
     Route: 048
     Dates: start: 20170403, end: 20170410

REACTIONS (8)
  - Cerebral disorder [None]
  - Feeling abnormal [None]
  - Suicide attempt [None]
  - Mood swings [None]
  - Nonspecific reaction [None]
  - Disturbance in attention [None]
  - Coordination abnormal [None]
  - Loss of employment [None]

NARRATIVE: CASE EVENT DATE: 20170403
